FAERS Safety Report 5256989-4 (Version None)
Quarter: 2007Q1

REPORT INFORMATION
  Report Type: 
  Country: None (occurrence: None)
  Receive Date: 20070307
  Receipt Date: 20070227
  Transmission Date: 20070707
  Serious: Yes (Life-Threatening, Hospitalization)
  Sender: FDA-Public Use
  Company Number: 2006PK02572

PATIENT
  Age: 23639 Day
  Sex: Female

DRUGS (13)
  1. ARIMIDEX [Suspect]
     Indication: BREAST CANCER
     Route: 048
     Dates: start: 20050819, end: 20061211
  2. ACTRAPID [Concomitant]
     Indication: DIABETES MELLITUS INSULIN-DEPENDENT
     Route: 058
  3. LANTUS [Concomitant]
     Indication: DIABETES MELLITUS INSULIN-DEPENDENT
     Route: 058
  4. CODEIN [Concomitant]
     Indication: COUGH
     Route: 048
     Dates: start: 20050818
  5. MIRTAZAPINE [Concomitant]
     Indication: DEPRESSION
     Route: 048
     Dates: start: 20051101
  6. DICODID [Concomitant]
     Indication: COUGH
     Route: 048
     Dates: start: 20050818
  7. VALSARTAN AND HYDROCHLOROTHIAZIDE [Concomitant]
     Indication: HYPERTENSION
     Route: 048
     Dates: start: 20051121
  8. ESIDRIX [Concomitant]
     Indication: HYPERTENSION
     Route: 048
     Dates: start: 20051121
  9. HELIXOR [Concomitant]
     Indication: PHYTOTHERAPY
     Route: 030
     Dates: start: 20051125, end: 20051125
  10. PHYTONOCTU [Concomitant]
     Indication: DEPRESSION
     Route: 048
     Dates: start: 20051121
  11. TRACE ELEMENTS [Concomitant]
     Indication: PROPHYLAXIS
  12. VITAMINS [Concomitant]
     Indication: PROPHYLAXIS
  13. MISTLE PREPARATION [Concomitant]
     Indication: PHYTOTHERAPY

REACTIONS (1)
  - HYPERGLYCAEMIA [None]
